FAERS Safety Report 5320241-9 (Version None)
Quarter: 2007Q2

REPORT INFORMATION
  Report Type: 
  Country: None (occurrence: None)
  Receive Date: 20070509
  Receipt Date: 20070502
  Transmission Date: 20071010
  Serious: Yes (Death, Other)
  Sender: FDA-Public Use
  Company Number: B0469800A

PATIENT
  Age: 31 Year
  Sex: Male

DRUGS (7)
  1. RANITIDINE [Suspect]
     Indication: DYSPEPSIA
     Dosage: 150MG PER DAY
     Route: 048
  2. CLOZARIL [Suspect]
     Indication: SCHIZOPHRENIA
     Dosage: 275MG PER DAY
     Route: 048
     Dates: start: 20060329
  3. VENLAFAXINE HCL [Suspect]
     Indication: DEPRESSION
     Dosage: 225MG PER DAY
     Route: 048
  4. BECLOMETHASONE DIPROPIONATE [Concomitant]
     Indication: ASTHMA
     Route: 055
  5. DIHYDROCODEINE BITARTRATE INJ [Concomitant]
     Indication: CHEST PAIN
     Route: 048
  6. SALBUTAMOL [Concomitant]
     Indication: ASTHMA
     Route: 055
  7. ANTIBIOTIC [Concomitant]

REACTIONS (8)
  - DEATH [None]
  - LOWER RESPIRATORY TRACT INFECTION [None]
  - MALAISE [None]
  - MYALGIA [None]
  - NEUTROPHIL COUNT INCREASED [None]
  - PLEURISY [None]
  - PNEUMONIA [None]
  - WHITE BLOOD CELL COUNT INCREASED [None]
